FAERS Safety Report 6721276-1 (Version None)
Quarter: 2010Q2

REPORT INFORMATION
  Report Type: 
  Country: None (occurrence: None)
  Receive Date: 20100512
  Receipt Date: 20100503
  Transmission Date: 20101027
  Serious: Yes (Other)
  Sender: FDA-Public Use
  Company Number: BR-SANOFI-AVENTIS-2009SA006590

PATIENT
  Age: 47 Year
  Sex: Female
  Weight: 85 kg

DRUGS (8)
  1. BLINDED THERAPY [Suspect]
     Indication: PULMONARY EMBOLISM
     Dates: start: 20090917
  2. ENOXAPARIN SODIUM [Suspect]
     Indication: PULMONARY EMBOLISM
     Route: 058
     Dates: start: 20090917
  3. ENALAPRIL MALEATE [Concomitant]
  4. DIAZEPAM [Concomitant]
  5. HYDROCHLOROTHIAZIDE [Concomitant]
  6. TYLENOL-500 [Concomitant]
  7. HYDROXYZINE [Concomitant]
  8. TAMARINE [Concomitant]

REACTIONS (1)
  - ACCIDENTAL OVERDOSE [None]
